FAERS Safety Report 13541871 (Version 7)
Quarter: 2017Q4

REPORT INFORMATION
  Report Type: Report from Study
  Country: MX (occurrence: MX)
  Receive Date: 20170512
  Receipt Date: 20171023
  Transmission Date: 20180320
  Serious: Yes (Hospitalization)
  Sender: FDA-Public Use
  Company Number: MX-AMGEN-MEXCT2017073176

PATIENT
  Age: 63 Year
  Sex: Female
  Weight: 80 kg

DRUGS (9)
  1. ARIMIDEX [Concomitant]
     Active Substance: ANASTROZOLE
     Indication: BREAST CANCER
     Dosage: UNK
     Dates: start: 20121228, end: 20131118
  2. DENOSUMAB [Suspect]
     Active Substance: DENOSUMAB
     Indication: BREAST CANCER
     Dosage: 120 MG, UNK
     Route: 058
     Dates: start: 20120807
  3. MOTILIUM [Concomitant]
     Active Substance: DOMPERIDONE
     Dosage: 1 MG, UNK
     Route: 048
     Dates: start: 20120626
  4. CALCIUM SANDOZ [Concomitant]
     Active Substance: CALCIUM
     Dosage: 500 MG, UNK
     Route: 048
     Dates: start: 20120807
  5. AROMASIN [Concomitant]
     Active Substance: EXEMESTANE
     Indication: BREAST CANCER
     Dosage: UNK
     Dates: start: 20131120, end: 20140423
  6. VALMETROL 3 [Concomitant]
     Dosage: 400 IU, UNK
     Route: 048
     Dates: start: 20120807
  7. VYTORIN [Concomitant]
     Active Substance: EZETIMIBE\SIMVASTATIN
     Dosage: 10 MG, UNK
     Route: 048
     Dates: start: 20120626
  8. INDERALICI [Concomitant]
     Dosage: 40 MG, UNK
     Route: 048
     Dates: start: 20120626
  9. FOLIC ACID. [Concomitant]
     Active Substance: FOLIC ACID
     Dosage: 250 UG, UNK
     Route: 048
     Dates: start: 20120626

REACTIONS (1)
  - Femur fracture [Recovered/Resolved]

NARRATIVE: CASE EVENT DATE: 20170309
